FAERS Safety Report 9836511 (Version 2)
Quarter: 2014Q1

REPORT INFORMATION
  Report Type: Spontaneous
  Country: US (occurrence: US)
  Receive Date: 20140123
  Receipt Date: 20140308
  Transmission Date: 20141002
  Serious: Yes (Other)
  Sender: FDA-Public Use
  Company Number: US-JNJFOC-20140111998

PATIENT
  Age: 47 Year
  Sex: Female
  Weight: 83.9 kg

DRUGS (6)
  1. MOTRIN [Suspect]
     Indication: PAIN IN EXTREMITY
     Route: 065
  2. NEURONTIN [Suspect]
     Indication: NEUROPATHY PERIPHERAL
     Route: 065
  3. GLIPIZIDE [Concomitant]
     Indication: DIABETES MELLITUS
     Route: 065
  4. WELLBUTRIN [Concomitant]
     Indication: DEPRESSION
     Route: 065
  5. LISINOPRIL [Concomitant]
     Indication: HYPERTENSION
     Route: 065
  6. VITAMIN B12 [Concomitant]
     Indication: POSTOPERATIVE CARE
     Route: 065

REACTIONS (4)
  - Infection [Unknown]
  - Swelling face [Unknown]
  - Ear swelling [Unknown]
  - Ear pain [Unknown]
